FAERS Safety Report 11579241 (Version 1)
Quarter: 2015Q3

REPORT INFORMATION
  Report Type: Spontaneous
  Country: US (occurrence: US)
  Receive Date: 20150930
  Receipt Date: 20150930
  Transmission Date: 20151125
  Serious: No
  Sender: FDA-Public Use
  Company Number: US-PFIZER INC-2015325118

PATIENT
  Sex: Female

DRUGS (18)
  1. LYRICA [Suspect]
     Active Substance: PREGABALIN
     Dosage: UNK
  2. NEURONTIN [Suspect]
     Active Substance: GABAPENTIN
     Dosage: UNK
  3. AMBIEN [Suspect]
     Active Substance: ZOLPIDEM TARTRATE
     Dosage: UNK
  4. TYLENOL [Suspect]
     Active Substance: ACETAMINOPHEN
     Dosage: UNK
  5. MANODIUM [Suspect]
     Active Substance: LOPERAMIDE HYDROCHLORIDE
     Dosage: UNK
  6. IODINE [Suspect]
     Active Substance: IODINE
  7. DILANTIN [Suspect]
     Active Substance: PHENYTOIN
     Dosage: UNK
  8. PENNSAID [Suspect]
     Active Substance: DICLOFENAC SODIUM
     Dosage: UNK
  9. LAMICTAL [Suspect]
     Active Substance: LAMOTRIGINE
     Dosage: UNK
  10. TIGAN [Suspect]
     Active Substance: TRIMETHOBENZAMIDE HYDROCHLORIDE
     Dosage: UNK
  11. CIPRO [Suspect]
     Active Substance: CIPROFLOXACIN HYDROCHLORIDE
     Dosage: UNK
  12. TRILEPTAL [Suspect]
     Active Substance: OXCARBAZEPINE
     Dosage: UNK
  13. CODEINE [Suspect]
     Active Substance: CODEINE
  14. DEPAKOTE [Suspect]
     Active Substance: DIVALPROEX SODIUM
     Dosage: UNK
  15. KEPPRA [Suspect]
     Active Substance: LEVETIRACETAM
     Dosage: UNK
  16. GABITRIL [Suspect]
     Active Substance: TIAGABINE HYDROCHLORIDE
     Dosage: UNK
  17. ZONEGRAN [Suspect]
     Active Substance: ZONISAMIDE
     Dosage: UNK
  18. IMITREX [Suspect]
     Active Substance: SUMATRIPTAN\SUMATRIPTAN SUCCINATE
     Dosage: UNK

REACTIONS (1)
  - Drug hypersensitivity [Unknown]
